FAERS Safety Report 20192444 (Version 1)
Quarter: 2021Q4

REPORT INFORMATION
  Report Type: Spontaneous
  Country: None (occurrence: US)
  Receive Date: 20211216
  Receipt Date: 20211216
  Transmission Date: 20220303
  Serious: No
  Sender: FDA-Public Use
  Company Number: US-ENDO PHARMACEUTICALS INC-2021-000857

PATIENT
  Age: 65 Year
  Sex: Male

DRUGS (1)
  1. XIAFLEX [Suspect]
     Active Substance: COLLAGENASE CLOSTRIDIUM HISTOLYTICUM
     Indication: Peyronie^s disease
     Dosage: UNK UNKNOWN, CYCLE 1, INJECTION 1
     Route: 065
     Dates: start: 20210125

REACTIONS (8)
  - Genital pain [Unknown]
  - Genital swelling [Unknown]
  - Haematuria [Recovered/Resolved]
  - Pyrexia [Recovered/Resolved]
  - Penile haemorrhage [Unknown]
  - Penile haematoma [Unknown]
  - Penile pain [Unknown]
  - Penile swelling [Unknown]

NARRATIVE: CASE EVENT DATE: 20210125
